FAERS Safety Report 10332115 (Version 1)
Quarter: 2014Q3

REPORT INFORMATION
  Report Type: Spontaneous
  Country: US (occurrence: US)
  Receive Date: 20140722
  Receipt Date: 20140722
  Transmission Date: 20150326
  Serious: Yes (Hospitalization)
  Sender: FDA-Public Use
  Company Number: US-BRISTOL-MYERS SQUIBB COMPANY-21209986

PATIENT
  Age: 5 Day
  Sex: Male
  Weight: 4.54 kg

DRUGS (5)
  1. ABILIFY [Suspect]
     Active Substance: ARIPIPRAZOLE
     Route: 064
  2. RISPERIDAL [Suspect]
     Active Substance: RISPERIDONE
     Dates: end: 20121215
  3. LAMICTAL [Suspect]
     Active Substance: LAMOTRIGINE
     Dosage: 100 MG SINCE MAR-2013.
     Route: 064
  4. WELLBUTRIN [Suspect]
     Active Substance: BUPROPION HYDROCHLORIDE
     Route: 064
  5. CYMBALTA [Suspect]
     Active Substance: DULOXETINE HYDROCHLORIDE
     Route: 064

REACTIONS (2)
  - Enterovirus infection [Unknown]
  - Foetal exposure during pregnancy [Recovered/Resolved]
